FAERS Safety Report 21079259 (Version 1)
Quarter: 2022Q3

REPORT INFORMATION
  Report Type: Spontaneous
  Country: FR (occurrence: FR)
  Receive Date: 20220714
  Receipt Date: 20220714
  Transmission Date: 20221027
  Serious: Yes (Other)
  Sender: FDA-Public Use
  Company Number: FR-VELOXIS PHARMACEUTICALS-2022VELFR-000423

PATIENT
  Age: 13 Year
  Sex: Female

DRUGS (6)
  1. PREDNISONE [Suspect]
     Active Substance: PREDNISONE
     Indication: IgA nephropathy
     Dosage: UNK
     Route: 048
  2. KENACORT [Suspect]
     Active Substance: TRIAMCINOLONE
     Indication: IgA nephropathy
     Dosage: 20 MILLIGRAM
     Route: 030
  3. KENACORT [Suspect]
     Active Substance: TRIAMCINOLONE
     Dosage: 40 MILLIGRAM
     Route: 030
  4. METHYLPREDNISOLONE [Suspect]
     Active Substance: METHYLPREDNISOLONE
     Indication: IgA nephropathy
     Dosage: RECEIVED THREE PULSES (1 GRAM/L.73 M2)
     Route: 065
  5. MYCOPHENOLATE MOFETIL [Suspect]
     Active Substance: MYCOPHENOLATE MOFETIL
     Indication: IgA nephropathy
     Dosage: 1000 MILLIGRAM/SQ. METER, ONCE A DAY
     Route: 065
  6. TACROLIMUS [Suspect]
     Active Substance: TACROLIMUS
     Indication: IgA nephropathy
     Dosage: 0.2 MILLIGRAM/KILOGRAM
     Route: 065

REACTIONS (4)
  - IgA nephropathy [Recovered/Resolved]
  - Condition aggravated [Recovered/Resolved]
  - Product use issue [Unknown]
  - Off label use [Unknown]

NARRATIVE: CASE EVENT DATE: 20180901
